FAERS Safety Report 23358901 (Version 1)
Quarter: 2024Q1

REPORT INFORMATION
  Report Type: Spontaneous
  Country: US (occurrence: US)
  Receive Date: 20240102
  Receipt Date: 20240102
  Transmission Date: 20240410
  Serious: No
  Sender: FDA-Public Use
  Company Number: US-PFIZER INC-202300453514

PATIENT
  Sex: Male

DRUGS (2)
  1. PAXLOVID [Suspect]
     Active Substance: NIRMATRELVIR\RITONAVIR
     Indication: COVID-19 treatment
     Dosage: UNK
     Dates: start: 20231213
  2. EZETIMIBE [Concomitant]
     Active Substance: EZETIMIBE
     Dosage: UNK
     Dates: start: 20230119, end: 20231213

REACTIONS (3)
  - Rhinorrhoea [Unknown]
  - Cough [Unknown]
  - Headache [Unknown]

NARRATIVE: CASE EVENT DATE: 20231221
